FAERS Safety Report 9004990 (Version 2)
Quarter: 2013Q1

REPORT INFORMATION
  Report Type: Report from Study
  Country: CA (occurrence: CA)
  Receive Date: 20130109
  Receipt Date: 20130215
  Transmission Date: 20140127
  Serious: Yes (Other)
  Sender: FDA-Public Use
  Company Number: CA-JNJFOC-20130100506

PATIENT
  Age: 59 None
  Sex: Male
  Weight: 72 kg

DRUGS (5)
  1. REMICADE [Suspect]
     Indication: CROHN^S DISEASE
     Route: 042
     Dates: start: 20060828
  2. REMICADE [Suspect]
     Indication: CROHN^S DISEASE
     Route: 042
     Dates: start: 20121228, end: 20121228
  3. BACTROBAN [Concomitant]
     Dosage: PRN (AS NEEDED)
     Route: 065
  4. PURINETHOL [Concomitant]
     Route: 065
  5. CORTICOSTEROID [Concomitant]
     Route: 061

REACTIONS (5)
  - Anal fistula [Recovering/Resolving]
  - Rash erythematous [Not Recovered/Not Resolved]
  - Haemorrhoids [Recovering/Resolving]
  - Eczema [Recovering/Resolving]
  - Abscess limb [Recovering/Resolving]
